FAERS Safety Report 21757796 (Version 1)
Quarter: 2022Q4

REPORT INFORMATION
  Report Type: Other
  Country: US (occurrence: US)
  Receive Date: 20221221
  Receipt Date: 20221221
  Transmission Date: 20230112
  Serious: Yes (Hospitalization)
  Sender: FDA-Public Use
  Company Number: US-BoehringerIngelheim-2021-BI-120376

PATIENT
  Age: 49 Year
  Sex: Female

DRUGS (4)
  1. ALTEPLASE [Suspect]
     Active Substance: ALTEPLASE
     Indication: Pulmonary embolism
     Dosage: A DOSE OF 10 MG 1 IN 1 TOTAL BOLUS,
     Route: 042
  2. ALTEPLASE [Suspect]
     Active Substance: ALTEPLASE
     Indication: Intracardiac thrombus
     Dosage: FOLLOWED BY 90 MG 1 IN 1 TOTAL INFUSION OVER 1 HOUR, FOR A TOTAL OF 100 MG.
     Route: 042
  3. HEPARIN [Concomitant]
     Active Substance: HEPARIN SODIUM
     Indication: Anticoagulant therapy
     Route: 042
  4. ASPIRIN [Concomitant]
     Active Substance: ASPIRIN
     Indication: Product used for unknown indication
     Dosage: 325 MG TWO TIMES PER DAY

REACTIONS (2)
  - Haematoma muscle [Recovered/Resolved]
  - Haemoglobin decreased [Recovered/Resolved]
